FAERS Safety Report 26113446 (Version 1)
Quarter: 2025Q4

REPORT INFORMATION
  Report Type: Report from Study
  Country: CO (occurrence: CO)
  Receive Date: 20251202
  Receipt Date: 20251202
  Transmission Date: 20260118
  Serious: Yes (Other)
  Sender: NOVARTIS
  Company Number: CO-002147023-NVSC2025CO110616

PATIENT
  Age: 73 Year
  Sex: Female
  Weight: 33 kg

DRUGS (9)
  1. KISQALI [Suspect]
     Active Substance: RIBOCICLIB SUCCINATE
     Indication: Breast cancer metastatic
     Dosage: 3 DOSAGE FORM
     Route: 065
     Dates: start: 20211021
  2. KISQALI [Suspect]
     Active Substance: RIBOCICLIB SUCCINATE
     Indication: Hormone receptor positive HER2 negative breast cancer
     Dosage: 600 MG, QD (APPROXIMATELY 3 YEARS AGO)
     Route: 048
     Dates: start: 2023
  3. KISQALI [Suspect]
     Active Substance: RIBOCICLIB SUCCINATE
     Dosage: 2 DOSAGE FORM
     Route: 065
  4. KISQALI [Suspect]
     Active Substance: RIBOCICLIB SUCCINATE
     Dosage: 400 MG, QD
     Route: 065
  5. KISQALI [Suspect]
     Active Substance: RIBOCICLIB SUCCINATE
     Dosage: 200 MG, QD (EVERY 24 HOURS /FOR 21 DAYS, SHE RESTS FOR 7 DAYS, AND RESUME)
     Route: 065
  6. KISQALI [Suspect]
     Active Substance: RIBOCICLIB SUCCINATE
     Dosage: 1 DOSAGE FORM, QD (FOR 21 DAYS AND RESTING FOR 7 DAYS)
     Route: 048
  7. FEMARA [Suspect]
     Active Substance: LETROZOLE
     Indication: Hormone receptor positive HER2 negative breast cancer
     Dosage: 2.5 MG, QD (AT NIGHT)
     Route: 048
     Dates: start: 20240101
  8. FEMARA [Suspect]
     Active Substance: LETROZOLE
     Indication: Breast cancer metastatic
  9. ZOMETA [Suspect]
     Active Substance: ZOLEDRONIC ACID
     Indication: Product used for unknown indication
     Dosage: UNK
     Route: 048
     Dates: start: 2023, end: 2024

REACTIONS (13)
  - Metastases to bone [Recovered/Resolved]
  - Osteonecrosis of jaw [Recovered/Resolved]
  - Tooth loss [Recovered/Resolved]
  - Malaise [Unknown]
  - Nausea [Recovering/Resolving]
  - Vomiting [Recovering/Resolving]
  - Eating disorder [Unknown]
  - Discouragement [Recovering/Resolving]
  - Asthenia [Recovered/Resolved]
  - Mobility decreased [Unknown]
  - Bone disorder [Unknown]
  - Fistula discharge [Recovered/Resolved]
  - Osteoarthritis [Recovered/Resolved]

NARRATIVE: CASE EVENT DATE: 20230501
